FAERS Safety Report 4767163-X (Version None)
Quarter: 2005Q3

REPORT INFORMATION
  Report Type: 
  Country: None (occurrence: None)
  Receive Date: 20050913
  Receipt Date: 20041123
  Transmission Date: 20060218
  Serious: Yes (Disabling)
  Sender: FDA-Public Use
  Company Number: PHEH2004US12654

PATIENT
  Age: 75 Year
  Sex: Male

DRUGS (7)
  1. GLEEVEC [Suspect]
     Indication: CHRONIC MYELOID LEUKAEMIA
     Dosage: 600 MG, QD
     Route: 048
     Dates: start: 20040801
  2. GLEEVEC [Suspect]
     Dosage: 400 MG, QD
     Route: 048
  3. ASPIRIN [Concomitant]
     Indication: CARDIAC DISORDER
     Dosage: 81 MG, QD
     Route: 048
  4. ALTACE [Concomitant]
     Indication: CARDIAC DISORDER
     Dosage: 2.5 MG, QD
     Route: 048
  5. METOPROLOL [Concomitant]
     Indication: CARDIAC DISORDER
     Dosage: 50 MG, QD
     Route: 048
  6. LASIX [Concomitant]
     Indication: CARDIAC DISORDER
     Dosage: 20 MG, QD
     Route: 048
  7. GEMFIBROZIL [Concomitant]
     Indication: LIPIDS INCREASED
     Dosage: 600 MG, QD
     Route: 048

REACTIONS (2)
  - BLINDNESS [None]
  - VITREOUS HAEMORRHAGE [None]
